FAERS Safety Report 19458642 (Version 3)
Quarter: 2021Q3

REPORT INFORMATION
  Report Type: Spontaneous
  Country: US (occurrence: US)
  Receive Date: 20210624
  Receipt Date: 20210921
  Transmission Date: 20211014
  Serious: Yes (Hospitalization)
  Sender: FDA-Public Use
  Company Number: US-AMNEAL PHARMACEUTICALS-2021-AMRX-02286

PATIENT
  Age: 40 Year
  Sex: Female
  Weight: 82.4 kg

DRUGS (13)
  1. IBUPROFEN. [Concomitant]
     Active Substance: IBUPROFEN
     Dosage: 400 MILLIGRAM AS REQUIRED
     Route: 048
     Dates: start: 20180214
  2. TRAZODONE [Concomitant]
     Active Substance: TRAZODONE HYDROCHLORIDE
     Indication: INSOMNIA
     Dosage: 50 MILLIGRAM, QD, EVERY BEDTIME
     Route: 048
     Dates: start: 20180628
  3. ALPRAZOLAM. [Concomitant]
     Active Substance: ALPRAZOLAM
     Indication: PANIC ATTACK
     Dosage: 1 TO 2 TABLETS, EVERY 6HR
     Route: 048
     Dates: start: 20201217
  4. ALPRAZOLAM. [Concomitant]
     Active Substance: ALPRAZOLAM
     Indication: ANXIETY
  5. ACTIVELLA [Suspect]
     Active Substance: ESTRADIOL\NORETHINDRONE ACETATE
     Dosage: 1 DOSAGE FORM, 1 /DAY
     Route: 048
     Dates: start: 20210322
  6. ELAGOLIX [Suspect]
     Active Substance: ELAGOLIX
     Dosage: 200 MILLIGRAM, BID
     Route: 048
     Dates: start: 20210322
  7. IBUPROFEN. [Concomitant]
     Active Substance: IBUPROFEN
     Dosage: 400 MILLIGRAM AS REQUIRED
     Route: 048
     Dates: start: 20190531
  8. ACTIVELLA [Suspect]
     Active Substance: ESTRADIOL\NORETHINDRONE ACETATE
     Indication: ENDOMETRIOSIS
     Dosage: 1 DOSAGE FORM, 1 /DAY
     Route: 048
     Dates: start: 20190503, end: 20210320
  9. BENADRYL [Concomitant]
     Active Substance: DIPHENHYDRAMINE HYDROCHLORIDE
     Indication: INSOMNIA
     Dosage: 50 MILLIGRAM AS REQUIRED
     Route: 048
     Dates: start: 201508
  10. PAXIL [PIROXICAM] [Concomitant]
     Active Substance: PIROXICAM
     Indication: ANXIETY
     Dosage: 10 MILLIGRAM, QD
     Route: 048
     Dates: start: 20190709
  11. ELAGOLIX [Suspect]
     Active Substance: ELAGOLIX
     Indication: ENDOMETRIOSIS
     Dosage: 200 MILLIGRAM, BID
     Route: 048
     Dates: start: 20190503, end: 20210320
  12. HYDROCODONE BITARTRATE AND ACETAMINOPHEN [Concomitant]
     Active Substance: ACETAMINOPHEN\HYDROCODONE BITARTRATE
     Indication: ENDOMETRIOSIS
     Dosage: 1 TO 2 TABLETS EVERY 4 TO 6 HOURS AS REQUIRED
     Route: 048
     Dates: start: 20190531
  13. IBUPROFEN. [Concomitant]
     Active Substance: IBUPROFEN
     Indication: ENDOMETRIOSIS
     Dosage: 400 MILLIGRAM AS REQUIRED
     Route: 048
     Dates: start: 199701, end: 20180214

REACTIONS (1)
  - Gastroenteritis [Recovered/Resolved]

NARRATIVE: CASE EVENT DATE: 20210320
